FAERS Safety Report 7559158-8 (Version None)
Quarter: 2011Q2

REPORT INFORMATION
  Report Type: 
  Country: None (occurrence: None)
  Receive Date: 20110621
  Receipt Date: 20110616
  Transmission Date: 20111010
  Serious: Yes (Hospitalization)
  Sender: FDA-Public Use
  Company Number: NL-PFIZER INC-2011133326

PATIENT
  Age: 57 Year
  Sex: Female
  Weight: 82 kg

DRUGS (9)
  1. NITROLINGUAL [Concomitant]
     Dosage: UNK
     Dates: start: 20110409
  2. ISOSORBIDE DINITRATE [Concomitant]
     Dosage: UNK
     Dates: start: 20110513
  3. VARENICLINE TARTRATE [Suspect]
     Indication: SMOKING CESSATION THERAPY
     Dosage: UNK
     Dates: start: 20110308
  4. ACETYLSALICYLIC ACID [Concomitant]
     Dosage: 80 MG, 1X/DAY
     Dates: start: 20110129
  5. PLAVIX [Concomitant]
     Dosage: 75 MG, 1X/DAY
     Dates: start: 20110129
  6. DOVOBET [Concomitant]
     Dosage: UNK
     Dates: start: 20110210
  7. SIMVASTATIN [Concomitant]
     Dosage: 20 MG, 1X/DAY
     Dates: start: 20110129
  8. RAMIPRIL [Concomitant]
     Dosage: 2.5 MG, 1X/DAY
     Dates: start: 20110129
  9. METAMUCIL-2 [Concomitant]
     Dosage: UNK
     Dates: start: 20110308

REACTIONS (3)
  - SLEEP DISORDER [None]
  - CHEST PAIN [None]
  - ANAL ULCER [None]
